FAERS Safety Report 6620631-8 (Version None)
Quarter: 2010Q1

REPORT INFORMATION
  Report Type: 
  Country: None (occurrence: None)
  Receive Date: 20100309
  Receipt Date: 20100301
  Transmission Date: 20100710
  Serious: Yes (Hospitalization)
  Sender: FDA-Public Use
  Company Number: US-PFIZER INC-2010026594

PATIENT
  Sex: Male

DRUGS (5)
  1. VIAGRA [Suspect]
     Indication: ERECTILE DYSFUNCTION
  2. AMLODIPINE BESYLATE [Suspect]
     Dosage: 10 MG, UNK
  3. LISINOPRIL [Suspect]
     Dosage: 20 MG, UNK
  4. LISINOPRIL [Suspect]
     Dosage: 40 MG, UNK
  5. METOPROLOL TARTRATE [Suspect]
     Dosage: 50 MG, UNK

REACTIONS (3)
  - BLOOD PRESSURE INCREASED [None]
  - MEMORY IMPAIRMENT [None]
  - OEDEMA PERIPHERAL [None]
